FAERS Safety Report 6997286-6 (Version None)
Quarter: 2010Q3

REPORT INFORMATION
  Report Type: 
  Country: None (occurrence: None)
  Receive Date: 20100918
  Receipt Date: 20091005
  Transmission Date: 20110219
  Serious: No
  Sender: FDA-Public Use
  Company Number: US-WYE-H11406209

PATIENT
  Sex: Female
  Weight: 118.04 kg

DRUGS (9)
  1. PRISTIQ [Suspect]
     Indication: DEPRESSION
     Route: 048
     Dates: start: 20090301
  2. BUSPAR [Concomitant]
  3. LITHIUM CARBONATE [Concomitant]
  4. ETODOLAC [Concomitant]
  5. NEXIUM [Concomitant]
  6. SYNTHROID [Concomitant]
  7. QUESTRAN [Concomitant]
  8. TRILEPTAL [Concomitant]
  9. ATIVAN [Concomitant]

REACTIONS (5)
  - BLOOD CHOLESTEROL INCREASED [None]
  - BLOOD TRIGLYCERIDES INCREASED [None]
  - CONDITION AGGRAVATED [None]
  - INCREASED APPETITE [None]
  - WEIGHT INCREASED [None]
